FAERS Safety Report 7470922-6 (Version None)
Quarter: 2011Q2

REPORT INFORMATION
  Report Type: 
  Country: None (occurrence: None)
  Receive Date: 20110428
  Receipt Date: 20110412
  Transmission Date: 20111010
  Serious: Yes (Death, Other)
  Sender: FDA-Public Use
  Company Number: 2011PROUSA00259

PATIENT
  Age: 66 Year
  Sex: Male
  Weight: 80.4 kg

DRUGS (3)
  1. PROVENGE [Suspect]
     Indication: PROSTATE CANCER METASTATIC
     Dosage: 250 ML, SINGLE, INTRAVENOUS
     Route: 042
     Dates: start: 20100729, end: 20100729
  2. PROVENGE [Suspect]
     Indication: PROSTATE CANCER METASTATIC
     Dosage: 250 ML, SINGLE, INTRAVENOUS
     Route: 042
     Dates: start: 20100715, end: 20100715
  3. PROVENGE [Suspect]
     Indication: PROSTATE CANCER METASTATIC
     Dosage: 250 ML, SINGLE, INTRAVENOUS
     Route: 042
     Dates: start: 20100701, end: 20100701

REACTIONS (8)
  - PROSTATE CANCER METASTATIC [None]
  - WEIGHT DECREASED [None]
  - MUSCULAR WEAKNESS [None]
  - HAEMOGLOBIN DECREASED [None]
  - BACK PAIN [None]
  - PERFORMANCE STATUS DECREASED [None]
  - FATIGUE [None]
  - PLATELET COUNT DECREASED [None]
